FAERS Safety Report 15121910 (Version 1)
Quarter: 2018Q3

REPORT INFORMATION
  Report Type: Report from Study
  Country: US (occurrence: US)
  Receive Date: 20180709
  Receipt Date: 20180709
  Transmission Date: 20181010
  Serious: Yes (Other)
  Sender: FDA-Public Use
  Company Number: US-THERATECHNOLOGIES, INC.-TH-2018-00308

PATIENT

DRUGS (5)
  1. EGRIFTA [Suspect]
     Active Substance: TESAMORELIN
     Dosage: UNK
     Dates: start: 20170718, end: 20180111
  2. OTHER THERAPEUTIC PRODUCTS [Concomitant]
     Active Substance: UNSPECIFIED INGREDIENT
     Dosage: UNK
  3. AMLODIPINE [Concomitant]
     Active Substance: AMLODIPINE BESYLATE
     Dosage: UNK
  4. ASPIRIN. [Concomitant]
     Active Substance: ASPIRIN
     Dosage: UNK
  5. METOPROLOL. [Concomitant]
     Active Substance: METOPROLOL
     Dosage: UNK

REACTIONS (5)
  - Dizziness [Recovered/Resolved]
  - Syncope [Recovered/Resolved]
  - Cardiac disorder [Not Recovered/Not Resolved]
  - Arrhythmia [Not Recovered/Not Resolved]
  - Dyspnoea [Recovered/Resolved]

NARRATIVE: CASE EVENT DATE: 201801
